FAERS Safety Report 8165665-X (Version None)
Quarter: 2012Q1

REPORT INFORMATION
  Report Type: 
  Country: None (occurrence: None)
  Receive Date: 20120227
  Receipt Date: 20120215
  Transmission Date: 20120608
  Serious: Yes (Hospitalization, Other)
  Sender: FDA-Public Use
  Company Number: FR-BRISTOL-MYERS SQUIBB COMPANY-16404576

PATIENT
  Age: 91 Year
  Sex: Female

DRUGS (11)
  1. CORDARONE [Suspect]
     Dosage: 1DF=ONE AT NOON 5 DAYS/7 DAYS
  2. ACETAMINOPHEN [Suspect]
  3. ATORVASTATIN [Suspect]
     Dosage: IN THE EVENING
  4. IMOVANE [Suspect]
     Dosage: ONE AT BEDTIME
  5. TRANSIPEG [Suspect]
     Dosage: 1DF=1 SACHET IN THE MORNING
  6. COUMADIN [Suspect]
     Indication: ATRIAL FIBRILLATION
     Dosage: 1 TABLET IN THE EVENING
     Route: 048
     Dates: start: 20110401, end: 20110722
  7. ESCITALOPRAM OXALATE [Suspect]
     Dosage: IN THE MORNING
  8. RAMIPRIL [Suspect]
     Dosage: ONE IN THE MORNING AND ONE IN THE EVENING
  9. ASPIRIN [Suspect]
     Dosage: AT NOON
  10. TRAMADOL HCL [Suspect]
  11. OXAZEPAM [Suspect]
     Dosage: IN THE EVENING

REACTIONS (4)
  - HAEMATURIA [None]
  - HAEMATOMA [None]
  - HAEMORRHAGIC STROKE [None]
  - ARRHYTHMIA [None]
